FAERS Safety Report 15819807 (Version 1)
Quarter: 2019Q1

REPORT INFORMATION
  Report Type: Spontaneous
  Country: US (occurrence: US)
  Receive Date: 20190114
  Receipt Date: 20190114
  Transmission Date: 20190417
  Serious: Yes (Death)
  Sender: FDA-Public Use
  Company Number: US-MICRO LABS LIMITED-ML2019-00021

PATIENT
  Age: 52 Year
  Sex: Female

DRUGS (5)
  1. CITALOPRAM [Suspect]
     Active Substance: CITALOPRAM HYDROBROMIDE
  2. DIPHENHYDRAMINE HYDROCHLORIDE. [Suspect]
     Active Substance: DIPHENHYDRAMINE HYDROCHLORIDE
  3. BUPROPION. [Suspect]
     Active Substance: BUPROPION
     Route: 048
  4. CAFFEINE CITRATE. [Suspect]
     Active Substance: CAFFEINE CITRATE
  5. ALCOHOL. [Suspect]
     Active Substance: ALCOHOL

REACTIONS (1)
  - Toxicity to various agents [Fatal]
